FAERS Safety Report 8316478-7 (Version None)
Quarter: 2012Q2

REPORT INFORMATION
  Report Type: 
  Country: None (occurrence: None)
  Receive Date: 20120425
  Receipt Date: 20120425
  Transmission Date: 20120825
  Serious: Yes (Death)
  Sender: FDA-Public Use
  Company Number: None

PATIENT
  Age: 7 Year
  Sex: Male
  Weight: 26.7622 kg

DRUGS (1)
  1. ONDANSETRON [Suspect]
     Indication: VOMITING
     Dosage: 4MG 2 TIMES 4 HOUR PERIOD  2 TABLETS
     Dates: start: 20120308

REACTIONS (2)
  - GRAND MAL CONVULSION [None]
  - UNRESPONSIVE TO STIMULI [None]
